FAERS Safety Report 24579534 (Version 1)
Quarter: 2024Q4

REPORT INFORMATION
  Report Type: Report from Study
  Country: GB (occurrence: GB)
  Receive Date: 20241105
  Receipt Date: 20241105
  Transmission Date: 20250114
  Serious: Yes (Hospitalization, Disabling, Other)
  Sender: CELLTRION
  Company Number: GB-CELLTRION INC.-2024GB026991

PATIENT

DRUGS (1)
  1. ADALIMUMAB-AATY [Suspect]
     Active Substance: ADALIMUMAB-AATY
     Indication: Psoriatic arthropathy
     Dosage: 40MG PEN PK2
     Route: 058
     Dates: start: 202405

REACTIONS (3)
  - Arthritis bacterial [Unknown]
  - Joint injury [Unknown]
  - Gait inability [Unknown]
